FAERS Safety Report 6854822-8 (Version None)
Quarter: 2010Q3

REPORT INFORMATION
  Report Type: 
  Country: None (occurrence: None)
  Receive Date: 20100717
  Receipt Date: 20080213
  Transmission Date: 20110219
  Serious: Yes (Other)
  Sender: FDA-Public Use
  Company Number: US-PFIZER INC-2008004669

PATIENT
  Sex: Female
  Weight: 90.7 kg

DRUGS (1)
  1. CHANTIX [Suspect]
     Indication: SMOKING CESSATION THERAPY
     Route: 048
     Dates: start: 20071212, end: 20080101

REACTIONS (5)
  - DYSPNOEA [None]
  - FEELING ABNORMAL [None]
  - MALAISE [None]
  - PANIC REACTION [None]
  - SLEEP DISORDER [None]
